FAERS Safety Report 12244275 (Version 4)
Quarter: 2016Q3

REPORT INFORMATION
  Report Type: Report from Study
  Country: CA (occurrence: CA)
  Receive Date: 20160407
  Receipt Date: 20160817
  Transmission Date: 20161109
  Serious: Yes (Other)
  Sender: FDA-Public Use
  Company Number: CA-ROCHE-1738431

PATIENT
  Age: 51 Year
  Sex: Female
  Weight: 88 kg

DRUGS (1)
  1. AVASTIN [Suspect]
     Active Substance: BEVACIZUMAB
     Indication: MALIGNANT PERITONEAL NEOPLASM
     Route: 042
     Dates: start: 20160225, end: 20160728

REACTIONS (4)
  - Dysgeusia [Not Recovered/Not Resolved]
  - Gastrooesophageal reflux disease [Unknown]
  - Oral disorder [Not Recovered/Not Resolved]
  - Helicobacter infection [Unknown]

NARRATIVE: CASE EVENT DATE: 201603
